FAERS Safety Report 13481961 (Version 2)
Quarter: 2017Q3

REPORT INFORMATION
  Report Type: Report from Study
  Country: US (occurrence: US)
  Receive Date: 20170424
  Receipt Date: 20170728
  Transmission Date: 20171127
  Serious: No
  Sender: FDA-Public Use
  Company Number: US-AMGEN-USASL2017050534

PATIENT
  Age: 65 Year
  Sex: Male
  Weight: 145.13 kg

DRUGS (11)
  1. REPATHA [Suspect]
     Active Substance: EVOLOCUMAB
     Indication: LOW DENSITY LIPOPROTEIN INCREASED
     Dosage: 140 MG, Q2WK
     Route: 065
  2. SPIRONOLACTONE. [Concomitant]
     Active Substance: SPIRONOLACTONE
     Indication: OEDEMA
     Dosage: 25 MG, QD
  3. BENADRYL [Concomitant]
     Active Substance: DIPHENHYDRAMINE HYDROCHLORIDE
     Dosage: 50 MG, QHS
     Route: 048
     Dates: end: 20170608
  4. NOVOLOG [Concomitant]
     Active Substance: INSULIN ASPART
     Dosage: 23 UNIT, IN TO SKIN TID
  5. NOVOLOG [Concomitant]
     Active Substance: INSULIN ASPART
     Dosage: INHALE 2 PUFFS INTO THE LUNGS
  6. SPIRONOLACTONE. [Concomitant]
     Active Substance: SPIRONOLACTONE
     Indication: OEDEMA PERIPHERAL
  7. CARDIZEM [Concomitant]
     Active Substance: DILTIAZEM HYDROCHLORIDE
  8. FISH OIL [Concomitant]
     Active Substance: FISH OIL
  9. NIACIN. [Concomitant]
     Active Substance: NIACIN
  10. WELCHOL [Concomitant]
     Active Substance: COLESEVELAM HYDROCHLORIDE
  11. REPATHA [Suspect]
     Active Substance: EVOLOCUMAB
     Indication: HYPERCHOLESTEROLAEMIA

REACTIONS (5)
  - Muscle disorder [Unknown]
  - Myalgia [Not Recovered/Not Resolved]
  - Drug intolerance [Unknown]
  - Dyspnoea [Recovered/Resolved]
  - Gait disturbance [Unknown]
